FAERS Safety Report 23840857 (Version 1)
Quarter: 2024Q2

REPORT INFORMATION
  Report Type: Report from Study
  Country: US (occurrence: US)
  Receive Date: 20240510
  Receipt Date: 20240510
  Transmission Date: 20240716
  Serious: Yes (Hospitalization, Other)
  Sender: FDA-Public Use
  Company Number: US-TEVA-2023-US-2874916

PATIENT
  Age: 54 Year
  Sex: Female

DRUGS (2)
  1. TREPROSTINIL [Suspect]
     Active Substance: TREPROSTINIL
     Indication: Pulmonary arterial hypertension
     Dosage: DOSAGE: 2.5 MG/ML 103 NKM, 44 ML/24HR
     Route: 042
     Dates: start: 202105
  2. TREPROSTINIL [Suspect]
     Active Substance: TREPROSTINIL
     Indication: Pulmonary arterial hypertension
     Dosage: DOSAGE TEXT: 98.7 NG/KG/MIN
     Route: 042
     Dates: start: 20210514

REACTIONS (5)
  - Pneumonia [Unknown]
  - Chest pain [Unknown]
  - Asthenia [Unknown]
  - Dyspnoea [Unknown]
  - Back pain [Unknown]

NARRATIVE: CASE EVENT DATE: 20240429
